FAERS Safety Report 17256767 (Version 3)
Quarter: 2020Q1

REPORT INFORMATION
  Report Type: Spontaneous
  Country: US (occurrence: US)
  Receive Date: 20200110
  Receipt Date: 20200130
  Transmission Date: 20200409
  Serious: No
  Sender: FDA-Public Use
  Company Number: US-VERTEX PHARMACEUTICALS-2019-013914

PATIENT
  Age: 18 Year
  Sex: Female
  Weight: 54 kg

DRUGS (2)
  1. CAYSTON [Concomitant]
     Active Substance: AZTREONAM
     Dosage: 75 MG, TID
     Route: 055
  2. TRIKAFTA [Suspect]
     Active Substance: ELEXACAFTOR\IVACAFTOR\TEZACAFTOR
     Indication: CYSTIC FIBROSIS
     Dosage: 2 ORANGE TABLETS (100MG/50MG/75MG) AND 1 BLUE TABLET (150 MG) BID
     Route: 048
     Dates: start: 20191223

REACTIONS (6)
  - Decreased appetite [Unknown]
  - Abdominal pain upper [Unknown]
  - Sputum increased [Unknown]
  - Cough [Unknown]
  - Influenza [Unknown]
  - Diarrhoea [Unknown]

NARRATIVE: CASE EVENT DATE: 201912
